FAERS Safety Report 5345760-0 (Version None)
Quarter: 2007Q2

REPORT INFORMATION
  Report Type: 
  Country: None (occurrence: None)
  Receive Date: 20070430
  Receipt Date: 20070208
  Transmission Date: 20071010
  Serious: No
  Sender: FDA-Public Use
  Company Number: 260710

PATIENT
  Age: 62 Year
  Sex: Female
  Weight: 113.4 kg

DRUGS (1)
  1. LEVEMIR [Suspect]
     Indication: DIABETES MELLITUS NON-INSULIN-DEPENDENT
     Dosage: 11 IU, QD, SUBCUTANEOUS
     Route: 058
     Dates: start: 20070206

REACTIONS (1)
  - BLOOD GLUCOSE INCREASED [None]
